FAERS Safety Report 7300647-9 (Version None)
Quarter: 2011Q1

REPORT INFORMATION
  Report Type: 
  Country: None (occurrence: None)
  Receive Date: 20110218
  Receipt Date: 20110209
  Transmission Date: 20110831
  Serious: No
  Sender: FDA-Public Use
  Company Number: US-BIOGENIDEC-2011BI005204

PATIENT
  Age: 27 Year
  Sex: Male

DRUGS (1)
  1. AVONEX [Suspect]
     Indication: MULTIPLE SCLEROSIS
     Route: 030
     Dates: start: 20100908

REACTIONS (4)
  - NASOPHARYNGITIS [None]
  - NASAL CONGESTION [None]
  - SINUS HEADACHE [None]
  - HEADACHE [None]
